FAERS Safety Report 9254954 (Version 2)
Quarter: 2014Q1

REPORT INFORMATION
  Report Type: Spontaneous
  Country: US (occurrence: US)
  Receive Date: 20130425
  Receipt Date: 20140113
  Transmission Date: 20141002
  Serious: Yes (Death, Other)
  Sender: FDA-Public Use
  Company Number: US-ASTRAZENECA-2013SE27691

PATIENT
  Age: 91 Year
  Sex: Male
  Weight: 57.6 kg

DRUGS (8)
  1. NEXIUM [Suspect]
     Indication: GASTROOESOPHAGEAL REFLUX DISEASE
     Dosage: DAILY
     Route: 048
  2. NEXIUM [Suspect]
     Indication: GASTROOESOPHAGEAL REFLUX DISEASE
     Route: 048
     Dates: start: 20051019
  3. LASIX [Concomitant]
  4. CALCIUM [Concomitant]
  5. METROPROLOL [Concomitant]
  6. ASPIRIN [Concomitant]
  7. ALTACE [Concomitant]
     Dates: start: 20051005
  8. SULAR [Concomitant]
     Dates: start: 20051005

REACTIONS (17)
  - Death [Fatal]
  - Hip fracture [Unknown]
  - Joint dislocation [Unknown]
  - Fall [Unknown]
  - Femur fracture [Unknown]
  - Spinal fracture [Unknown]
  - Osteoporosis [Unknown]
  - Bone disorder [Unknown]
  - Rib fracture [Unknown]
  - Upper limb fracture [Unknown]
  - Calcium deficiency [Unknown]
  - Angina pectoris [Unknown]
  - Cataract [Unknown]
  - Chronic obstructive pulmonary disease [Unknown]
  - Peripheral vascular disorder [Unknown]
  - Osteopenia [Unknown]
  - Osteoarthritis [Unknown]
